FAERS Safety Report 5220760-X (Version None)
Quarter: 2007Q1

REPORT INFORMATION
  Report Type: 
  Country: None (occurrence: None)
  Receive Date: 20070126
  Receipt Date: 20070119
  Transmission Date: 20070707
  Serious: Yes (Hospitalization)
  Sender: FDA-Public Use
  Company Number: AU-JNJFOC-20070105273

PATIENT
  Age: 23 Year
  Sex: Female
  Weight: 70 kg

DRUGS (7)
  1. INFLIXIMAB [Suspect]
     Dosage: THREE TIMES
     Route: 042
  2. INFLIXIMAB [Suspect]
     Dosage: THREE TIMES
     Route: 042
  3. INFLIXIMAB [Suspect]
     Indication: CROHN'S DISEASE
     Dosage: THREE TIMES
     Route: 042
  4. METHOTREXATE [Concomitant]
  5. PREDNISONE TAB [Concomitant]
  6. FOLIC ACID [Concomitant]
  7. SULFASALAZINE [Concomitant]

REACTIONS (3)
  - ARTHRITIS [None]
  - LUPUS-LIKE SYNDROME [None]
  - RASH [None]
